FAERS Safety Report 4867294-X (Version None)
Quarter: 2005Q4

REPORT INFORMATION
  Report Type: 
  Country: None (occurrence: None)
  Receive Date: 20051228
  Receipt Date: 20051215
  Transmission Date: 20060501
  Serious: Yes (Other)
  Sender: FDA-Public Use
  Company Number: PHBS2005BR18683

PATIENT
  Age: 50 Year
  Sex: Female
  Weight: 52 kg

DRUGS (7)
  1. ATENOLOL [Concomitant]
     Indication: HYPERTENSION
     Dosage: 50 MG, QD
     Route: 048
  2. LOSARTAN POTASSIUM [Concomitant]
  3. NEXIUM [Concomitant]
     Indication: REFLUX OESOPHAGITIS
     Dosage: 40 MG, BID
     Route: 048
  4. FORASEQ [Suspect]
     Indication: ASTHMA
     Dosage: 12 FORM - 400 BUDE UG/BID
  5. FORASEQ [Suspect]
     Dosage: 12 FORM - 400 BUDE UG/DAY
  6. FORASEQ [Suspect]
     Dosage: 12 FORM - 200 BUDE UG/BID
  7. FORASEQ [Suspect]
     Dosage: 12 FORM - 200 BUDE UG/DAY

REACTIONS (5)
  - BETA HAEMOLYTIC STREPTOCOCCAL INFECTION [None]
  - CHOKING SENSATION [None]
  - GASTROINTESTINAL DISORDER [None]
  - MOUTH PLAQUE [None]
  - OESOPHAGEAL CANDIDIASIS [None]
